FAERS Safety Report 18920775 (Version 4)
Quarter: 2021Q3

REPORT INFORMATION
  Report Type: Spontaneous
  Country: US (occurrence: US)
  Receive Date: 20210222
  Receipt Date: 20210817
  Transmission Date: 20211014
  Serious: No
  Sender: FDA-Public Use
  Company Number: US-BRISTOL-MYERS SQUIBB COMPANY-BMS-2021-017553

PATIENT
  Age: 50 Year
  Sex: Female

DRUGS (1)
  1. ORENCIA [Suspect]
     Active Substance: ABATACEPT
     Indication: PRODUCT USED FOR UNKNOWN INDICATION
     Dosage: 125 MILLIGRAM, QWK
     Route: 058
     Dates: start: 20200501

REACTIONS (7)
  - Stress [Unknown]
  - Swelling face [Unknown]
  - Peripheral swelling [Unknown]
  - Pruritus [Unknown]
  - Swelling [Unknown]
  - Injection site haemorrhage [Unknown]
  - Injection site reaction [Unknown]
